FAERS Safety Report 11329464 (Version 2)
Quarter: 2015Q3

REPORT INFORMATION
  Report Type: Spontaneous
  Country: FI (occurrence: FI)
  Receive Date: 20150803
  Receipt Date: 20150903
  Transmission Date: 20151125
  Serious: Yes (Other)
  Sender: FDA-Public Use
  Company Number: FI-ACCORD-032709

PATIENT
  Sex: Male
  Weight: 2.2 kg

DRUGS (9)
  1. LABETALOL [Concomitant]
     Active Substance: LABETALOL\LABETALOL HYDROCHLORIDE
     Indication: HYPERTENSION
     Dosage: HIGH BLOOD PRESSURE
     Route: 064
  2. DIAZEPAM. [Concomitant]
     Active Substance: DIAZEPAM
     Indication: SEIZURE
     Route: 064
  3. PROPOFOL. [Concomitant]
     Active Substance: PROPOFOL
     Route: 064
  4. LACOSAMIDE [Suspect]
     Active Substance: LACOSAMIDE
     Indication: SEIZURE
     Dosage: ON DAY 4, 300 MG
     Route: 064
  5. ENOXAPARIN [Concomitant]
     Active Substance: ENOXAPARIN
     Indication: PRODUCT USED FOR UNKNOWN INDICATION
     Dosage: LATER RECEIVED 40 MG BID
     Route: 064
  6. MIDAZOLAM [Concomitant]
     Active Substance: MIDAZOLAM\MIDAZOLAM HYDROCHLORIDE
     Indication: PRODUCT USED FOR UNKNOWN INDICATION
     Route: 064
  7. FOSPHENYTOIN/FOSPHENYTOIN SODIUM [Concomitant]
     Indication: EPILEPSY
     Dosage: ON DAY 4, 600 MG
     Route: 064
  8. LORAZEPAM. [Concomitant]
     Active Substance: LORAZEPAM
     Indication: STATUS EPILEPTICUS
     Dosage: ON DAY 4, 6 MG
     Route: 064
  9. LEVETIRACETAM. [Suspect]
     Active Substance: LEVETIRACETAM
     Indication: EPILEPSY
     Dosage: LATER RECEIVED 1000 MG TWICE DAILY, ON DAY 4: 3000 MG
     Route: 064

REACTIONS (4)
  - Somnolence [Recovered/Resolved]
  - Foetal exposure during pregnancy [Unknown]
  - Exposure during breast feeding [Unknown]
  - Poor feeding infant [Recovered/Resolved]
